FAERS Safety Report 5297346-4 (Version None)
Quarter: 2007Q2

REPORT INFORMATION
  Report Type: 
  Country: None (occurrence: None)
  Receive Date: 20070409
  Receipt Date: 20070326
  Transmission Date: 20071010
  Serious: Yes (Death, Other)
  Sender: FDA-Public Use
  Company Number: GXKR2007AU02925

PATIENT
  Age: 26 Year
  Sex: Female

DRUGS (8)
  1. VINCRISTINE [Suspect]
     Indication: ACUTE LYMPHOCYTIC LEUKAEMIA
  2. DOXORUBICIN (NGX) (DOXORUBICIN) UNKNOWN [Suspect]
     Indication: ACUTE LYMPHOCYTIC LEUKAEMIA
  3. DEXAMETHASONE [Suspect]
     Indication: ACUTE LYMPHOCYTIC LEUKAEMIA
  4. METHOTREXATE [Suspect]
     Indication: ACUTE LEUKAEMIA
     Dosage: 3 X 12 MG, INTRATHECAL;
     Route: 037
  5. METHOTREXATE [Suspect]
     Indication: ACUTE LYMPHOCYTIC LEUKAEMIA
     Dosage: ORAL
     Route: 048
  6. CYTARABINE [Suspect]
     Indication: ACUTE LYMPHOCYTIC LEUKAEMIA
     Dosage: 3 X 100 MG; INTRATHECAL
     Route: 037
  7. CYCLOPHOSPHAMIDE [Suspect]
     Indication: ACUTE LYMPHOCYTIC LEUKAEMIA
  8. MERCAPTOPURINE [Suspect]
     Indication: DRUG USE FOR UNKNOWN INDICATION

REACTIONS (15)
  - ACUTE LYMPHOCYTIC LEUKAEMIA RECURRENT [None]
  - AREFLEXIA [None]
  - CSF PROTEIN INCREASED [None]
  - FAECAL INCONTINENCE [None]
  - LOSS OF PROPRIOCEPTION [None]
  - MUSCULAR WEAKNESS [None]
  - MYELOPATHY [None]
  - NUCLEAR MAGNETIC RESONANCE IMAGING ABNORMAL [None]
  - OSTEOMYELITIS [None]
  - PARALYSIS FLACCID [None]
  - PARAPLEGIA [None]
  - SENSORY LOSS [None]
  - SEPSIS [None]
  - SPINAL CORD DISORDER [None]
  - URINARY INCONTINENCE [None]
